FAERS Safety Report 4335168-9 (Version None)
Quarter: 2004Q2

REPORT INFORMATION
  Report Type: 
  Country: None (occurrence: None)
  Receive Date: 20040408
  Receipt Date: 20040211
  Transmission Date: 20050107
  Serious: Yes (Hospitalization)
  Sender: FDA-Public Use
  Company Number: FR-BRISTOL-MYERS SQUIBB COMPANY-12527065

PATIENT
  Age: 76 Year
  Sex: Female
  Weight: 41 kg

DRUGS (6)
  1. ELISOR TABS 20 MG [Suspect]
     Route: 048
     Dates: start: 20030601
  2. SECTRAL [Concomitant]
     Dates: start: 20010101
  3. ALDACTONE [Concomitant]
     Dates: start: 20010101
  4. KARDEGIC [Concomitant]
  5. NIMOTOP [Concomitant]
     Dates: start: 20010101
  6. LEVOTHYROXINE SODIUM [Concomitant]
     Dates: start: 20010101

REACTIONS (3)
  - DIFFICULTY IN WALKING [None]
  - NERVE ROOT LESION [None]
  - PARAESTHESIA [None]
